FAERS Safety Report 9489542 (Version 1)
Quarter: 2013Q3

REPORT INFORMATION
  Report Type: Spontaneous
  Country: US (occurrence: US)
  Receive Date: 20130725
  Receipt Date: 20130725
  Transmission Date: 20140515
  Serious: Yes (Hospitalization)
  Sender: FDA-Public Use
  Company Number: US-GLAXOSMITHKLINE-A1001777A

PATIENT
  Age: 73 Year
  Sex: Male

DRUGS (1)
  1. AVANDIA [Suspect]
     Indication: DIABETES MELLITUS
     Dosage: 8MG PER DAY
     Route: 048
     Dates: start: 20010528, end: 2008

REACTIONS (8)
  - Myocardial infarction [Not Recovered/Not Resolved]
  - Angina pectoris [Unknown]
  - Coronary artery reocclusion [Unknown]
  - Ventricular tachycardia [Unknown]
  - Ischaemic cardiomyopathy [Unknown]
  - Atrial flutter [Unknown]
  - Coronary artery disease [Unknown]
  - Sinus bradycardia [Unknown]
